FAERS Safety Report 19865905 (Version 1)
Quarter: 2021Q3

REPORT INFORMATION
  Report Type: Report from Study
  Country: IT (occurrence: IT)
  Receive Date: 20210921
  Receipt Date: 20210921
  Transmission Date: 20211014
  Serious: Yes (Hospitalization)
  Sender: FDA-Public Use
  Company Number: IT-TEVA-2021-IT-1954779

PATIENT
  Age: 52 Year
  Sex: Female
  Weight: 87 kg

DRUGS (2)
  1. CARBOPLATINO TEVA 10 MG/ML [Suspect]
     Active Substance: CARBOPLATIN
     Indication: HER2 POSITIVE BREAST CANCER
     Dosage: 268 MG
     Route: 042
     Dates: start: 20210401, end: 20210623
  2. PACLITAXEL ACCORD HEALTHCARE ITALIA 6 MG/ML, CONCENTRATO PER SOLUZIONE [Suspect]
     Active Substance: PACLITAXEL
     Indication: HER2 POSITIVE BREAST CANCER
     Dosage: 90 MCG/M2
     Route: 042
     Dates: start: 20210401, end: 20210623

REACTIONS (3)
  - Skin burning sensation [Recovered/Resolved]
  - Rash [Recovered/Resolved]
  - Pruritus [Recovered/Resolved]

NARRATIVE: CASE EVENT DATE: 20210623
